FAERS Safety Report 8078158-5 (Version None)
Quarter: 2012Q1

REPORT INFORMATION
  Report Type: 
  Country: None (occurrence: None)
  Receive Date: 20120127
  Receipt Date: 20101215
  Transmission Date: 20120608
  Serious: No
  Sender: FDA-Public Use
  Company Number: US-BAUSCH-2010BL007131

PATIENT
  Age: 83 Year
  Sex: Female

DRUGS (2)
  1. ZYLET [Suspect]
     Indication: SUPERFICIAL INJURY OF EYE
     Route: 047
     Dates: start: 20101108
  2. DARVOCET-N 50 [Concomitant]
     Indication: PRODUCT USED FOR UNKNOWN INDICATION
     Route: 048

REACTIONS (4)
  - VISUAL ACUITY REDUCED [None]
  - EYE IRRITATION [None]
  - OCULAR HYPERAEMIA [None]
  - LACRIMATION INCREASED [None]
